FAERS Safety Report 4847600-2 (Version None)
Quarter: 2005Q4

REPORT INFORMATION
  Report Type: 
  Country: None (occurrence: None)
  Receive Date: 20051207
  Receipt Date: 20051101
  Transmission Date: 20060501
  Serious: Yes (Hospitalization)
  Sender: FDA-Public Use
  Company Number: PHNR2005AU01577

PATIENT
  Age: 78 Year
  Sex: Male

DRUGS (3)
  1. CABERGOLINE [Suspect]
     Dosage: 1 MG, NOCTE
  2. MICARDIS [Concomitant]
  3. STALEVO 100 [Suspect]
     Indication: PARKINSON'S DISEASE
     Dosage: 100/25/200MG

REACTIONS (4)
  - CEREBROVASCULAR ACCIDENT [None]
  - FACIAL PALSY [None]
  - HEMIPARESIS [None]
  - MONOPLEGIA [None]
